FAERS Safety Report 24730237 (Version 1)
Quarter: 2024Q4

REPORT INFORMATION
  Report Type: Spontaneous
  Country: PT (occurrence: PT)
  Receive Date: 20241213
  Receipt Date: 20241213
  Transmission Date: 20250115
  Serious: Yes (Other)
  Sender: ALKEM
  Company Number: PT-ALKEM LABORATORIES LIMITED-PT-ALKEM-2024-13442

PATIENT
  Age: 46 Year
  Sex: Female
  Weight: 45 kg

DRUGS (6)
  1. AZATHIOPRINE [Suspect]
     Active Substance: AZATHIOPRINE
     Indication: Autoimmune hepatitis
     Dosage: 50 MILLIGRAM
     Route: 065
  2. MYCOPHENOLATE MOFETIL [Suspect]
     Active Substance: MYCOPHENOLATE MOFETIL
     Indication: Autoimmune hepatitis
     Dosage: 1.5 GRAM, QD
     Route: 065
  3. PREDNISOLONE [Suspect]
     Active Substance: PREDNISOLONE
     Indication: Autoimmune hepatitis
     Dosage: 1 MILLIGRAM/KILOGRAM
     Route: 065
  4. PREDNISOLONE [Suspect]
     Active Substance: PREDNISOLONE
     Dosage: 7.5 MILLIGRAM
  5. PREDNISOLONE [Suspect]
     Active Substance: PREDNISOLONE
     Dosage: 20 MILLIGRAM
  6. LOSARTAN [Concomitant]
     Active Substance: LOSARTAN
     Indication: Hypertension
     Dosage: 50 MILLIGRAM
     Route: 065

REACTIONS (3)
  - Herpes simplex [Unknown]
  - Hepatotoxicity [Unknown]
  - Hepatitis D [Unknown]
